FAERS Safety Report 4929377-5 (Version None)
Quarter: 2006Q1

REPORT INFORMATION
  Report Type: 
  Country: None (occurrence: None)
  Receive Date: 20060224
  Receipt Date: 20060213
  Transmission Date: 20060701
  Serious: Yes (Life-Threatening, Other)
  Sender: FDA-Public Use
  Company Number: 153-20785-06020246

PATIENT

DRUGS (2)
  1. THALIDOMIDE (THALIDOMIDE) (CAPSULES) [Suspect]
     Indication: HEPATIC NEOPLASM MALIGNANT
     Dosage: 200MG INCREASED WEEKLY BY 100-200 MG AS TOLERATED QD, ORAL
     Route: 048
  2. LAXATIVES [Concomitant]

REACTIONS (10)
  - ALANINE AMINOTRANSFERASE INCREASED [None]
  - BRADYCARDIA [None]
  - CONSTIPATION [None]
  - CYSTITIS [None]
  - DERMATITIS ALLERGIC [None]
  - HYPOAESTHESIA ORAL [None]
  - INTRACARDIAC THROMBUS [None]
  - LETHARGY [None]
  - PERITONITIS BACTERIAL [None]
  - SOMNOLENCE [None]
